FAERS Safety Report 21585077 (Version 2)
Quarter: 2022Q4

REPORT INFORMATION
  Report Type: Spontaneous
  Country: AU (occurrence: AU)
  Receive Date: 20221111
  Receipt Date: 20221115
  Transmission Date: 20230112
  Serious: Yes (Hospitalization, Disabling)
  Sender: FDA-Public Use
  Company Number: AU-MYLANLABS-2022M1123880

PATIENT
  Age: 72 Year
  Sex: Female

DRUGS (16)
  1. TACROLIMUS [Suspect]
     Active Substance: TACROLIMUS
     Indication: Immunosuppressant drug therapy
     Dosage: UNK (INITIAL)
     Route: 065
  2. TACROLIMUS [Suspect]
     Active Substance: TACROLIMUS
     Dosage: UNK
     Route: 065
  3. MYCOPHENOLATE MOFETIL [Suspect]
     Active Substance: MYCOPHENOLATE MOFETIL
     Indication: Immunosuppressant drug therapy
     Dosage: UNK (INITIAL DOSE)
     Route: 065
  4. MYCOPHENOLATE MOFETIL [Suspect]
     Active Substance: MYCOPHENOLATE MOFETIL
     Dosage: UNK, DOSE DECREASED
     Route: 065
  5. VORICONAZOLE [Suspect]
     Active Substance: VORICONAZOLE
     Indication: Mycotic endophthalmitis
     Dosage: DOSE: 0.1MG/0.1ML INJECTIONS TWICE WEEKLY
     Route: 065
  6. VORICONAZOLE [Suspect]
     Active Substance: VORICONAZOLE
     Indication: Aspergillus infection
  7. METHYLPREDNISOLONE [Suspect]
     Active Substance: METHYLPREDNISOLONE
     Indication: Immunosuppressant drug therapy
     Dosage: UNK
     Route: 065
  8. METHYLPREDNISOLONE [Suspect]
     Active Substance: METHYLPREDNISOLONE
     Indication: Transplant rejection
     Dosage: 500 MILLIGRAM, QD
     Route: 042
  9. BASILIXIMAB [Suspect]
     Active Substance: BASILIXIMAB
     Indication: Immunosuppressant drug therapy
     Dosage: UNK
     Route: 065
  10. PREDNISOLONE [Suspect]
     Active Substance: PREDNISOLONE
     Indication: Immunosuppressant drug therapy
     Dosage: UNK
     Route: 048
  11. PREDNISOLONE [Suspect]
     Active Substance: PREDNISOLONE
     Indication: Transplant rejection
     Dosage: 10 MILLIGRAM, QD
     Route: 048
  12. ANIDULAFUNGIN [Concomitant]
     Active Substance: ANIDULAFUNGIN
     Indication: Endophthalmitis
     Dosage: 100 MILLIGRAM, QD
     Route: 042
  13. ANIDULAFUNGIN [Concomitant]
     Active Substance: ANIDULAFUNGIN
     Indication: Aspergillus infection
  14. MICAFUNGIN [Concomitant]
     Active Substance: MICAFUNGIN
     Indication: Disseminated aspergillosis
     Dosage: UNK
     Route: 042
  15. TERBINAFINE [Concomitant]
     Active Substance: TERBINAFINE
     Indication: Disseminated aspergillosis
     Dosage: 250 MILLIGRAM, BID
     Route: 048
  16. PIPERACILLIN AND TAZOBACTAM [Concomitant]
     Active Substance: PIPERACILLIN SODIUM\TAZOBACTAM SODIUM
     Indication: Antibiotic therapy
     Dosage: UNK
     Route: 065

REACTIONS (5)
  - Disseminated aspergillosis [Recovered/Resolved]
  - Mycotic endophthalmitis [Recovered/Resolved]
  - Periostitis [Recovered/Resolved]
  - Fluorosis [Recovered/Resolved]
  - Off label use [Unknown]
